FAERS Safety Report 8274650-9 (Version None)
Quarter: 2012Q2

REPORT INFORMATION
  Report Type: 
  Country: None (occurrence: None)
  Receive Date: 20120411
  Receipt Date: 20120402
  Transmission Date: 20120825
  Serious: Yes (Life-Threatening, Hospitalization)
  Sender: FDA-Public Use
  Company Number: FR-GLAXOSMITHKLINE-B0746122A

PATIENT
  Sex: Female

DRUGS (18)
  1. LYRICA [Concomitant]
     Route: 065
  2. ACETAMINOPHEN [Concomitant]
     Route: 065
  3. LANSOYL [Concomitant]
     Route: 065
     Dates: end: 20110301
  4. CARDIOCALM [Concomitant]
     Route: 065
     Dates: end: 20110301
  5. IXEL [Concomitant]
     Route: 065
  6. MAGNE B6 [Concomitant]
     Route: 065
     Dates: end: 20110301
  7. LOCERYL [Concomitant]
     Route: 065
     Dates: end: 20110301
  8. ESCITALOPRAM [Suspect]
     Indication: DEPRESSION
     Dosage: 15MG PER DAY
     Route: 048
     Dates: start: 20110125, end: 20110314
  9. CHLORMADINONE ACETATE TAB [Suspect]
     Indication: PRODUCT USED FOR UNKNOWN INDICATION
     Dosage: 10MG PER DAY
     Route: 048
     Dates: start: 20110201, end: 20110314
  10. HEPTAMYL [Concomitant]
     Route: 065
     Dates: end: 20110301
  11. LEPTICUR [Suspect]
     Indication: PRODUCT USED FOR UNKNOWN INDICATION
     Dosage: 10MG PER DAY
     Route: 048
     Dates: start: 20110215, end: 20110314
  12. BETAMETHASONE [Suspect]
     Indication: PRODUCT USED FOR UNKNOWN INDICATION
     Route: 061
     Dates: start: 20110125, end: 20110314
  13. TERCIAN [Suspect]
     Indication: MENTAL DISORDER
     Dosage: 112.5MG PER DAY
     Route: 048
     Dates: start: 20110125, end: 20110314
  14. ESTRADIOL [Suspect]
     Indication: PRODUCT USED FOR UNKNOWN INDICATION
     Dosage: 2MG PER DAY
     Route: 048
     Dates: start: 20110201, end: 20110314
  15. TEGRETOL [Concomitant]
     Route: 065
     Dates: start: 20101201, end: 20110201
  16. DESLORATADINE [Concomitant]
     Route: 065
     Dates: end: 20110301
  17. XANAX [Concomitant]
     Route: 065
  18. NOCTAMIDE [Concomitant]
     Route: 065
     Dates: end: 20110301

REACTIONS (8)
  - RESPIRATORY DISORDER [None]
  - AGRANULOCYTOSIS [None]
  - BONE MARROW FAILURE [None]
  - BACTERAEMIA [None]
  - HYPERTHERMIA [None]
  - SEPTIC SHOCK [None]
  - CELLULITIS [None]
  - SEPSIS [None]
